FAERS Safety Report 20565359 (Version 1)
Quarter: 2022Q1

REPORT INFORMATION
  Report Type: Spontaneous
  Country: US (occurrence: US)
  Receive Date: 20220308
  Receipt Date: 20220308
  Transmission Date: 20220424
  Serious: No
  Sender: FDA-Public Use
  Company Number: US-ALLERGAN-2143393US

PATIENT
  Sex: Female

DRUGS (2)
  1. ESTRADIOL [Suspect]
     Active Substance: ESTRADIOL
     Indication: Product used for unknown indication
     Dosage: UNK, BI-WEEKLY
  2. ESTRADIOL [Suspect]
     Active Substance: ESTRADIOL
     Dosage: UNK, QD
     Dates: start: 20211202

REACTIONS (4)
  - Wrong technique in product usage process [Unknown]
  - Drug ineffective [Unknown]
  - Product primary packaging issue [Unknown]
  - Product design issue [Unknown]
